FAERS Safety Report 9659900 (Version 3)
Quarter: 2013Q4

REPORT INFORMATION
  Report Type: Spontaneous
  Country: BR (occurrence: BR)
  Receive Date: 20131031
  Receipt Date: 20131126
  Transmission Date: 20140711
  Serious: Yes (Death, Other)
  Sender: FDA-Public Use
  Company Number: BR-PFIZER INC-2013150468

PATIENT
  Age: 61 Year
  Sex: Male

DRUGS (3)
  1. SUTENT [Suspect]
     Indication: RENAL CELL CARCINOMA
     Dosage: 1 CAPSULE STRENGTH 50 MG 1X/DAY, CYCLIC (CYCLE 4 X 2)
     Route: 048
     Dates: start: 20120905, end: 201305
  2. SUTENT [Suspect]
     Dosage: 50 MG (1 CAPSULE), ALTERNATE DAYS
     Route: 048
     Dates: end: 20130716
  3. CAPTOPRIL [Concomitant]

REACTIONS (10)
  - Death [Fatal]
  - Platelet count decreased [Unknown]
  - Disease progression [Unknown]
  - Renal cell carcinoma [Unknown]
  - Mouth haemorrhage [Unknown]
  - Rash [Unknown]
  - Pain in extremity [Not Recovered/Not Resolved]
  - Pruritus [Recovering/Resolving]
  - Blister [Unknown]
  - Gait disturbance [Not Recovered/Not Resolved]
